FAERS Safety Report 16868612 (Version 2)
Quarter: 2019Q4

REPORT INFORMATION
  Report Type: Spontaneous
  Country: US (occurrence: US)
  Receive Date: 20190930
  Receipt Date: 20191008
  Transmission Date: 20200122
  Serious: No
  Sender: FDA-Public Use
  Company Number: US-PFIZER INC-2019418967

PATIENT
  Age: 72 Year
  Sex: Female
  Weight: 97.52 kg

DRUGS (6)
  1. CELEBREX [Concomitant]
     Active Substance: CELECOXIB
     Dosage: UNK
  2. DILTIAZEM. [Concomitant]
     Active Substance: DILTIAZEM
     Dosage: UNK
  3. PANTOPRAZOLE [Concomitant]
     Active Substance: PANTOPRAZOLE
     Dosage: UNK
  4. MONTELUKAST [Concomitant]
     Active Substance: MONTELUKAST SODIUM
     Dosage: UNK
  5. LYRICA [Suspect]
     Active Substance: PREGABALIN
     Indication: FIBROMYALGIA
     Dosage: 150 MG, 2X/DAY
     Route: 048
  6. ELIQUIS [Concomitant]
     Active Substance: APIXABAN
     Dosage: UNK

REACTIONS (4)
  - Weight fluctuation [Unknown]
  - Condition aggravated [Unknown]
  - Gait inability [Unknown]
  - Back disorder [Unknown]

NARRATIVE: CASE EVENT DATE: 201907
